FAERS Safety Report 7085926-5 (Version None)
Quarter: 2010Q4

REPORT INFORMATION
  Report Type: 
  Country: None (occurrence: None)
  Receive Date: 20101105
  Receipt Date: 20101028
  Transmission Date: 20110411
  Serious: Yes (Other)
  Sender: FDA-Public Use
  Company Number: ZA-ABBOTT-10P-143-0681570-00

PATIENT
  Sex: Male

DRUGS (2)
  1. HUMIRA [Suspect]
     Indication: ANKYLOSING SPONDYLITIS
     Route: 058
     Dates: start: 20090225
  2. HUMIRA [Suspect]
     Route: 058

REACTIONS (3)
  - CONJUNCTIVITIS [None]
  - MEASLES [None]
  - RASH ERYTHEMATOUS [None]
